FAERS Safety Report 5101580-3 (Version None)
Quarter: 2006Q3

REPORT INFORMATION
  Report Type: 
  Country: None (occurrence: None)
  Receive Date: 20060906
  Receipt Date: 20060823
  Transmission Date: 20061208
  Serious: Yes (Death)
  Sender: FDA-Public Use
  Company Number: 2006103458

PATIENT
  Age: 4 Year
  Sex: Male

DRUGS (14)
  1. GENOTROPIN [Suspect]
     Indication: PRADER-WILLI SYNDROME
     Dosage: 0/034 MG/KG (0.5 MG, WEEKLY), SUBCUTANEOUS
     Route: 058
     Dates: start: 20060627, end: 20060701
  2. CLARITHROMYCIN [Concomitant]
  3. SPIRONOLACTONE [Concomitant]
  4. FUROSEMIDE [Concomitant]
  5. VENTOLIN [Concomitant]
  6. ALDECIN (BECLOMETASONE DIPROPIONATE) [Concomitant]
  7. FLAVOBION (SILYMARIN) [Concomitant]
  8. VITAMIN K (PHYROMENADIONE) [Concomitant]
  9. VITAMIN C (VITAMIN C) [Concomitant]
  10. DIGOXIN [Concomitant]
  11. OXYGEN (OXYGEN) [Concomitant]
  12. MAGNESIUM (MAGNESIUM) [Concomitant]
  13. PYRIDOXINE HCL [Concomitant]
  14. KALNORMIN (POTASSIUM CHLORIDE) [Concomitant]

REACTIONS (2)
  - CARDIAC FAILURE ACUTE [None]
  - HEPATORENAL FAILURE [None]
